FAERS Safety Report 9787300 (Version 2)
Quarter: 2014Q1

REPORT INFORMATION
  Report Type: Report from Study
  Country: FR (occurrence: FR)
  Receive Date: 20131230
  Receipt Date: 20140105
  Transmission Date: 20141002
  Serious: Yes (Death)
  Sender: FDA-Public Use
  Company Number: FR-ROCHE-1327284

PATIENT
  Age: 89 Year
  Sex: Female
  Weight: 63 kg

DRUGS (1)
  1. METHOXY POLYETHYLENE GLYCOL-EPOETIN BETA [Suspect]
     Indication: RENAL FAILURE CHRONIC
     Route: 065
     Dates: start: 20130402, end: 20130616

REACTIONS (3)
  - Sepsis [Fatal]
  - Multi-organ failure [Fatal]
  - Cachexia [Fatal]
